FAERS Safety Report 8151929-2 (Version None)
Quarter: 2012Q1

REPORT INFORMATION
  Report Type: 
  Country: None (occurrence: None)
  Receive Date: 20120221
  Receipt Date: 20120217
  Transmission Date: 20120608
  Serious: No
  Sender: FDA-Public Use
  Company Number: US-PFIZER INC-2012039559

PATIENT
  Sex: Female
  Weight: 58.503 kg

DRUGS (1)
  1. IBUPROFEN (ADVIL) [Suspect]
     Indication: ARTHRITIS
     Dosage: 600 MG, 3X/DAY
     Route: 048
     Dates: start: 20120101

REACTIONS (1)
  - DRUG INEFFECTIVE [None]
